FAERS Safety Report 4290591-6 (Version None)
Quarter: 2004Q1

REPORT INFORMATION
  Report Type: 
  Country: None (occurrence: None)
  Receive Date: 20040210
  Receipt Date: 20040205
  Transmission Date: 20041129
  Serious: Yes (Hospitalization)
  Sender: FDA-Public Use
  Company Number: 04-02-0204

PATIENT
  Age: 91 Year
  Sex: Female

DRUGS (5)
  1. TRAMADOL HCL [Suspect]
     Indication: OSTEOARTHRITIS
     Dosage: 100MG NOCTE ORAL
     Route: 048
     Dates: start: 20031210, end: 20040105
  2. QUININE SULPHATE [Concomitant]
  3. TRIMETHOPRIM [Concomitant]
  4. SENNA [Concomitant]
  5. CO-AMILOFRUSE [Concomitant]

REACTIONS (1)
  - INAPPROPRIATE ANTIDIURETIC HORMONE SECRETION [None]
